FAERS Safety Report 6532360-X (Version None)
Quarter: 2010Q1

REPORT INFORMATION
  Report Type: 
  Country: None (occurrence: None)
  Receive Date: 20100108
  Receipt Date: 20100104
  Transmission Date: 20100710
  Serious: Yes (Hospitalization)
  Sender: FDA-Public Use
  Company Number: GB-PFIZER INC-2010000299

PATIENT
  Sex: Female

DRUGS (17)
  1. GABAPENTIN [Suspect]
     Route: 064
  2. MORPHINE SULFATE [Suspect]
     Indication: MYELITIS TRANSVERSE
     Dosage: 15 MG, UNK
     Route: 064
  3. FLUOXETINE HYDROCHLORIDE [Suspect]
     Indication: MAJOR DEPRESSION
     Route: 064
  4. TRAMADOL HYDROCHLORIDE [Suspect]
     Indication: MYELITIS TRANSVERSE
     Dosage: 100 MG, EVERY 6 HRS
     Route: 064
  5. AMITRIPTYLINE [Suspect]
     Indication: MYELITIS TRANSVERSE
     Dosage: 25 MG, 1X/DAY
     Route: 064
  6. TRIFLUOPERAZINE [Suspect]
     Indication: MAJOR DEPRESSION
     Route: 064
  7. HEPARIN [Concomitant]
     Route: 064
  8. NORMAL HUMAN IMMUNOGLOBULIN [Concomitant]
     Dosage: 42 G, 1X/DAY
     Route: 064
  9. ISOFLURANE [Concomitant]
     Route: 064
  10. METHYLPREDNISOLONE [Concomitant]
     Dosage: 1 G, 1X/DAY
     Route: 064
  11. NITROUS OXIDE [Concomitant]
     Route: 064
  12. PARACETAMOL [Concomitant]
     Dosage: 1 G, EVERY 6 HRS
     Route: 064
  13. RANITIDINE [Concomitant]
     Dosage: 150 MG, SINGLE
     Route: 064
  14. ROCURONIUM [Concomitant]
     Dosage: 60 MG, SINGLE
     Route: 064
  15. SODIUM CITRATE [Concomitant]
     Dosage: 30 MG, SINGLE
     Route: 064
  16. THIOPENTAL [Concomitant]
     Dosage: 450 MG, SINGLE
     Route: 064
  17. VITAMIN B-12 [Concomitant]
     Dosage: 1 MG, 1X/DAY
     Route: 064

REACTIONS (3)
  - APNOEA [None]
  - DRUG EXPOSURE DURING PREGNANCY [None]
  - DRUG WITHDRAWAL SYNDROME [None]
